FAERS Safety Report 9172148 (Version 2)
Quarter: 2013Q1

REPORT INFORMATION
  Report Type: Spontaneous
  Country: US (occurrence: US)
  Receive Date: 20130319
  Receipt Date: 20130322
  Transmission Date: 20140127
  Serious: No
  Sender: FDA-Public Use
  Company Number: US-PFIZER INC-2013089060

PATIENT
  Age: 65 Year
  Sex: Female
  Weight: 86.17 kg

DRUGS (8)
  1. LIPITOR [Suspect]
     Indication: BLOOD CHOLESTEROL ABNORMAL
     Dosage: 10 MG, DAILY
     Dates: start: 2008
  2. LIPITOR [Suspect]
     Dosage: 10 MG, ALTERNATE DAY
     Dates: start: 200903
  3. VITAMIN D [Concomitant]
     Indication: SUPPLEMENTATION THERAPY
     Dosage: UNK
  4. VITAMIN E [Concomitant]
     Indication: SUPPLEMENTATION THERAPY
     Dosage: UNK
  5. VITAMIN B12 [Concomitant]
     Indication: SUPPLEMENTATION THERAPY
     Dosage: UNK
  6. FLAX SEED [Concomitant]
     Indication: SUPPLEMENTATION THERAPY
     Dosage: UNK
  7. EVENING PRIMROSE OIL [Concomitant]
     Indication: FLUSHING
     Dosage: UNK
  8. GLUCOSAMINE [Concomitant]
     Indication: ARTHROPATHY
     Dosage: UNK

REACTIONS (6)
  - Expired drug administered [Unknown]
  - Inappropriate schedule of drug administration [Unknown]
  - Nasopharyngitis [Recovering/Resolving]
  - Chills [Recovered/Resolved]
  - Retching [Not Recovered/Not Resolved]
  - Dysphonia [Not Recovered/Not Resolved]
